FAERS Safety Report 19428105 (Version 3)
Quarter: 2025Q3

REPORT INFORMATION
  Report Type: Other
  Country: CA (occurrence: CA)
  Receive Date: 20210617
  Receipt Date: 20250702
  Transmission Date: 20251020
  Serious: Yes (Hospitalization)
  Sender: APOTEX
  Company Number: CA-APOTEX-2021AP014080

PATIENT
  Age: 66 Year
  Sex: Female
  Weight: 66 kg

DRUGS (19)
  1. ALBUTEROL [Suspect]
     Active Substance: ALBUTEROL
     Indication: Asthma
     Dosage: 100 MICROGRAM, QD
  2. ALVESCO [Suspect]
     Active Substance: CICLESONIDE
     Indication: Product used for unknown indication
     Dosage: 200 MICROGRAM, QD
  3. ATROVENT [Suspect]
     Active Substance: IPRATROPIUM BROMIDE
     Indication: Product used for unknown indication
     Route: 065
  4. FLUTICASONE FUROATE [Suspect]
     Active Substance: FLUTICASONE FUROATE
     Indication: Sinusitis
     Dosage: 2 DOSAGE FORM, QD
     Route: 045
  5. FORMOTEROL\MOMETASONE [Suspect]
     Active Substance: FORMOTEROL\MOMETASONE
     Indication: Product used for unknown indication
     Dosage: 200 MICROGRAM, BID
  6. FORMOTEROL\MOMETASONE [Suspect]
     Active Substance: FORMOTEROL\MOMETASONE
     Dosage: 400 MICROGRAM, QD
  7. GLYCOPYRRONIUM\FORMOTEROL FUMARATE [Suspect]
     Active Substance: GLYCOPYRRONIUM\FORMOTEROL FUMARATE
     Indication: Product used for unknown indication
     Route: 065
  8. MEPOLIZUMAB [Suspect]
     Active Substance: MEPOLIZUMAB
     Indication: Asthma
     Dosage: 100 MILLIGRAM, QD
     Route: 042
  9. MEPOLIZUMAB [Suspect]
     Active Substance: MEPOLIZUMAB
     Indication: Product used for unknown indication
  10. VENTOLIN HFA [Suspect]
     Active Substance: ALBUTEROL SULFATE
     Indication: Asthma
     Route: 065
  11. ROFLUMILAST [Concomitant]
     Active Substance: ROFLUMILAST
     Indication: Product used for unknown indication
     Route: 065
  12. DOMPERIDONE [Concomitant]
     Active Substance: DOMPERIDONE
     Indication: Product used for unknown indication
     Route: 065
  13. NICOTINE [Concomitant]
     Active Substance: NICOTINE
     Indication: Smoking cessation therapy
     Route: 065
  14. PANTOPRAZOLE SODIUM ANHYDROUS [Concomitant]
     Active Substance: PANTOPRAZOLE SODIUM ANHYDROUS
     Indication: Product used for unknown indication
     Dosage: 40 MILLIGRAM, QD
     Route: 065
  15. PREDNISONE [Concomitant]
     Active Substance: PREDNISONE
     Indication: Product used for unknown indication
     Dosage: 5 MILLIGRAM, QD
     Route: 065
  16. ROSUVASTATIN CALCIUM [Concomitant]
     Active Substance: ROSUVASTATIN CALCIUM
     Indication: Product used for unknown indication
     Dosage: 5 MILLIGRAM, QD
     Route: 065
  17. TIOTROPIUM [Concomitant]
     Active Substance: TIOTROPIUM
     Indication: Product used for unknown indication
     Route: 065
  18. ZOPICLONE [Concomitant]
     Active Substance: ZOPICLONE
     Indication: Product used for unknown indication
     Dosage: 7.5 MILLIGRAM, QD
     Route: 065
  19. NITROGLYCERIN [Concomitant]
     Active Substance: NITROGLYCERIN
     Indication: Smoking cessation therapy
     Route: 065

REACTIONS (11)
  - Full blood count abnormal [Unknown]
  - Asthma [Unknown]
  - Dyspnoea [Unknown]
  - Influenza [Unknown]
  - Nasopharyngitis [Unknown]
  - Obstructive airways disorder [Unknown]
  - Plethysmography [Unknown]
  - Respiratory gas exchange disorder [Unknown]
  - Sneezing [Unknown]
  - Wheezing [Unknown]
  - Therapeutic product effect incomplete [Unknown]
